FAERS Safety Report 7360968-0 (Version None)
Quarter: 2011Q1

REPORT INFORMATION
  Report Type: 
  Country: None (occurrence: None)
  Receive Date: 20110318
  Receipt Date: 20110316
  Transmission Date: 20110831
  Serious: Yes (Death)
  Sender: FDA-Public Use
  Company Number: US-PFIZER INC-2011058254

PATIENT
  Sex: Female
  Weight: 113 kg

DRUGS (3)
  1. BUMEX [Suspect]
     Indication: PULMONARY HYPERTENSION
     Dosage: 1 MG, 3X/DAY
     Route: 048
     Dates: start: 20110201
  2. REVATIO [Suspect]
     Indication: PULMONARY HYPERTENSION
     Dosage: 20 MG, 3X/DAY
     Route: 048
     Dates: start: 20101101
  3. LISINOPRIL [Suspect]
     Indication: PULMONARY HYPERTENSION
     Dosage: 5 MG, 1X/DAY
     Route: 048

REACTIONS (1)
  - DEATH [None]
